FAERS Safety Report 9596718 (Version 1)
Quarter: 2013Q4

REPORT INFORMATION
  Report Type: Spontaneous
  Country: FR (occurrence: FR)
  Receive Date: 20131004
  Receipt Date: 20131004
  Transmission Date: 20140711
  Serious: Yes (Other)
  Sender: FDA-Public Use
  Company Number: FR-GLAXOSMITHKLINE-B0925308A

PATIENT
  Age: 51 Year
  Sex: Male

DRUGS (13)
  1. ZOPHREN [Suspect]
     Indication: PREMEDICATION
     Route: 048
     Dates: start: 20130215
  2. DOCETAXEL [Concomitant]
     Indication: NEOPLASM MALIGNANT
     Route: 042
     Dates: start: 20130215
  3. CISPLATINE [Concomitant]
     Indication: NEOPLASM MALIGNANT
     Route: 042
     Dates: start: 20130215
  4. FLUOROURACIL [Concomitant]
     Indication: NEOPLASM MALIGNANT
     Route: 042
     Dates: start: 20130215
  5. EMEND [Concomitant]
     Indication: PREMEDICATION
     Route: 048
     Dates: start: 20130215
  6. CIFLOX [Concomitant]
     Indication: PHARYNGITIS
     Route: 048
     Dates: start: 20130214
  7. CORTANCYL [Concomitant]
     Indication: PREMEDICATION
     Route: 048
     Dates: start: 20130215
  8. MEDROL [Concomitant]
     Indication: PRODUCT USED FOR UNKNOWN INDICATION
     Route: 048
  9. PRIMPERAN [Concomitant]
     Indication: PREMEDICATION
     Route: 048
     Dates: start: 20130215
  10. RULID [Concomitant]
     Indication: PHARYNGITIS
     Route: 048
     Dates: start: 201302
  11. ACTISKENAN [Concomitant]
     Route: 065
  12. SKENAN [Concomitant]
     Route: 065
  13. MOPRAL [Concomitant]
     Route: 065

REACTIONS (3)
  - Rash maculo-papular [Recovered/Resolved]
  - Toxic skin eruption [Recovered/Resolved]
  - Epidermal necrosis [Recovered/Resolved]
